FAERS Safety Report 12316242 (Version 1)
Quarter: 2016Q2

REPORT INFORMATION
  Report Type: Spontaneous
  Country: US (occurrence: US)
  Receive Date: 20160428
  Receipt Date: 20160428
  Transmission Date: 20160815
  Serious: No
  Sender: FDA-Public Use
  Company Number: US-TEVA-649644ACC

PATIENT
  Age: 22 Year
  Sex: Female
  Weight: 73.55 kg

DRUGS (3)
  1. PHENTERMINE. [Concomitant]
     Active Substance: PHENTERMINE
     Indication: HYPERMETABOLISM
  2. PLAN B ONE-STEP [Suspect]
     Active Substance: LEVONORGESTREL
     Indication: POST COITAL CONTRACEPTION
     Dates: start: 20160326, end: 20160326
  3. PHENTERMINE. [Concomitant]
     Active Substance: PHENTERMINE
     Indication: DECREASED APPETITE

REACTIONS (2)
  - Vaginal haemorrhage [Not Recovered/Not Resolved]
  - Nausea [Not Recovered/Not Resolved]

NARRATIVE: CASE EVENT DATE: 20160401
